FAERS Safety Report 9460778 (Version 2)
Quarter: 2018Q3

REPORT INFORMATION
  Report Type: Spontaneous
  Country: FR (occurrence: FR)
  Receive Date: 20130815
  Receipt Date: 20180828
  Transmission Date: 20181010
  Serious: Yes (Death, Congenital Anomaly, Other)
  Sender: FDA-Public Use
  Company Number: FR-VIIV HEALTHCARE LIMITED-B0913486B

PATIENT
  Sex: Female

DRUGS (2)
  1. COMBIVIR [Suspect]
     Active Substance: LAMIVUDINE\ZIDOVUDINE
     Indication: HIV INFECTION
     Dosage: UNK
     Route: 064
     Dates: start: 20120717, end: 20130304
  2. REYATAZ [Suspect]
     Active Substance: ATAZANAVIR SULFATE
     Indication: HIV INFECTION
     Dosage: UNK
     Route: 064
     Dates: start: 20120717, end: 20130304

REACTIONS (12)
  - Foot deformity [Fatal]
  - Foetal malformation [Fatal]
  - Dysmorphism [Fatal]
  - Foetal growth restriction [Fatal]
  - Congenital multiplex arthrogryposis [Fatal]
  - Foetal exposure during pregnancy [Unknown]
  - Congenital central nervous system anomaly [Fatal]
  - Arthropathy [Fatal]
  - Ankle deformity [Fatal]
  - Dilatation ventricular [Fatal]
  - Congenital hand malformation [Fatal]
  - Limb malformation [Fatal]

NARRATIVE: CASE EVENT DATE: 20120717
